FAERS Safety Report 6308849-5 (Version None)
Quarter: 2009Q3

REPORT INFORMATION
  Report Type: 
  Country: None (occurrence: None)
  Receive Date: 20090813
  Receipt Date: 20081115
  Transmission Date: 20100115
  Serious: No
  Sender: FDA-Public Use
  Company Number: US-ALLERGAN-0814578US

PATIENT
  Age: 81 Year
  Sex: Female

DRUGS (11)
  1. COMBIGAN [Suspect]
     Indication: GLAUCOMA
     Dosage: UNK, UNKNOWN
     Route: 047
     Dates: start: 20081115
  2. FUROSEMIDE [Concomitant]
     Indication: DIURETIC THERAPY
     Dosage: 4 MG, UNK
  3. LIPITOR [Concomitant]
     Dosage: UNK, QHS
  4. PLAVIX [Concomitant]
     Dosage: 75 MG, QD
  5. NORVASC [Concomitant]
     Dosage: 10 MG, UNK
  6. METOPROLOL SUCCINATE [Concomitant]
     Dosage: 50 MG, HALF
  7. ASPIRIN [Concomitant]
     Dosage: 325 MG, UNK
  8. PAIN RELIEVER [Concomitant]
     Indication: PAIN
     Dosage: UNK, QHS
  9. INSULIN [Concomitant]
  10. LUMIGAN [Concomitant]
     Indication: GLAUCOMA
     Dosage: 1 GTT, UNK
  11. FLU SHOT [Concomitant]
     Route: 030
     Dates: start: 20081001

REACTIONS (7)
  - COUGH [None]
  - EPISTAXIS [None]
  - FEELING ABNORMAL [None]
  - HAEMOPTYSIS [None]
  - NASAL CONGESTION [None]
  - POSTNASAL DRIP [None]
  - SPUTUM DISCOLOURED [None]
